FAERS Safety Report 4377854-0 (Version None)
Quarter: 2004Q2

REPORT INFORMATION
  Report Type: 
  Country: None (occurrence: None)
  Receive Date: 20040609
  Receipt Date: 20040525
  Transmission Date: 20050107
  Serious: Yes (Hospitalization, Disabling)
  Sender: FDA-Public Use
  Company Number: 00P-087-0090516-00

PATIENT
  Age: 58 Year
  Sex: Female
  Weight: 54 kg

DRUGS (9)
  1. OMNICEF [Suspect]
     Indication: BRONCHITIS ACUTE
     Dosage: 100 MG, 3 IN 1 D, PER ORAL
     Route: 048
     Dates: start: 19981130, end: 19981203
  2. PL GRAN. [Concomitant]
  3. AZULENE [Concomitant]
  4. SERRAPEPTATE [Concomitant]
  5. MANIDIPINE HYDROCHLORIDE [Concomitant]
  6. CLOFEDANOL [Concomitant]
  7. FAMOTIDINE [Concomitant]
  8. OFLOXACIN [Concomitant]
  9. AMLODIPINE [Concomitant]

REACTIONS (7)
  - HAEMATURIA [None]
  - LYMPHOCYTE STIMULATION TEST POSITIVE [None]
  - NAUSEA [None]
  - NEPHRITIS INTERSTITIAL [None]
  - PLATELET COUNT INCREASED [None]
  - RENAL ATROPHY [None]
  - RENAL FAILURE CHRONIC [None]
